FAERS Safety Report 7097295-5 (Version None)
Quarter: 2010Q4

REPORT INFORMATION
  Report Type: 
  Country: None (occurrence: None)
  Receive Date: 20101111
  Receipt Date: 20101029
  Transmission Date: 20110411
  Serious: Yes (Other)
  Sender: FDA-Public Use
  Company Number: FR-ELI_LILLY_AND_COMPANY-FR201009004109

PATIENT
  Age: 57 Year
  Sex: Female
  Weight: 56 kg

DRUGS (1)
  1. OPTRUMA [Suspect]
     Indication: OSTEOPOROSIS PROPHYLAXIS
     Dosage: 60 MG, DAILY (1/D)
     Route: 048
     Dates: start: 20060901

REACTIONS (1)
  - MACULAR DEGENERATION [None]
